FAERS Safety Report 6357747-X (Version None)
Quarter: 2009Q3

REPORT INFORMATION
  Report Type: 
  Country: None (occurrence: None)
  Receive Date: 20090911
  Receipt Date: 20090831
  Transmission Date: 20100115
  Serious: Yes (Other)
  Sender: FDA-Public Use
  Company Number: 232287J08USA

PATIENT
  Age: 56 Year
  Sex: Female
  Weight: 54 kg

DRUGS (11)
  1. REBIF [Suspect]
     Indication: MULTIPLE SCLEROSIS
     Dosage: 22 MCG, 3 IN 1 WEEKS, SUBCUTANEOUS; 33 MCG, 3 IN 1 WEEKS, SUBCUTANEOUS
     Route: 058
     Dates: start: 20070129, end: 20080201
  2. REBIF [Suspect]
     Indication: MULTIPLE SCLEROSIS
     Dosage: 22 MCG, 3 IN 1 WEEKS, SUBCUTANEOUS; 33 MCG, 3 IN 1 WEEKS, SUBCUTANEOUS
     Route: 058
     Dates: start: 20080201
  3. VERAPAMIL [Concomitant]
  4. ENALAPRIL (ENALAPRIL /00574901/) [Concomitant]
  5. GABAPENTIN [Concomitant]
  6. DETROL LA [Concomitant]
  7. DITROPAN (OXYBUTYNIN /000538901/) [Concomitant]
  8. POTASSIUM CHLORIDE [Concomitant]
  9. ZOLOFT [Concomitant]
  10. FOSAMAX [Concomitant]
  11. UNSPECIFIED ANTIBIOTICS (ANTIBIOTICS) [Concomitant]

REACTIONS (6)
  - BLADDER DISORDER [None]
  - CYSTITIS NONINFECTIVE [None]
  - HAEMATURIA [None]
  - HAEMORRHAGE [None]
  - ULCER [None]
  - URETHRAL OBSTRUCTION [None]
